FAERS Safety Report 8258010-2 (Version None)
Quarter: 2012Q2

REPORT INFORMATION
  Report Type: 
  Country: None (occurrence: None)
  Receive Date: 20120404
  Receipt Date: 20120323
  Transmission Date: 20120825
  Serious: Yes (Hospitalization)
  Sender: FDA-Public Use
  Company Number: FR-JNJFOC-20120400330

PATIENT
  Sex: Male

DRUGS (20)
  1. TRIMEBUTINE [Concomitant]
     Route: 065
  2. BLEOMYCIN SULFATE [Concomitant]
     Indication: CHEMOTHERAPY
     Route: 065
     Dates: start: 20120206
  3. VINBLASTINE SULFATE [Concomitant]
     Indication: CHEMOTHERAPY
     Route: 065
  4. POLARAMINE [Concomitant]
     Route: 065
  5. VALACICLOVIR [Concomitant]
     Route: 065
  6. MOTILIUM [Concomitant]
     Route: 065
  7. DOXIRUBICIN [Concomitant]
     Indication: CHEMOTHERAPY
     Route: 065
  8. DARUNAVIR HYDRATE [Concomitant]
     Route: 065
  9. MEBEVERINE [Concomitant]
     Route: 065
  10. CREON [Concomitant]
     Route: 065
  11. ACETAMINOPHEN AND TRAMADOL HCL [Suspect]
     Indication: PRODUCT USED FOR UNKNOWN INDICATION
     Route: 048
     Dates: start: 20120206, end: 20120215
  12. DACARBAZINE [Concomitant]
     Indication: CHEMOTHERAPY
     Route: 065
  13. SPASFON [Concomitant]
     Route: 065
  14. MORPHINE SULFATE [Suspect]
     Indication: PRODUCT USED FOR UNKNOWN INDICATION
     Route: 048
     Dates: start: 20120206, end: 20120215
  15. ZOFRAN [Suspect]
     Indication: PRODUCT USED FOR UNKNOWN INDICATION
     Route: 048
     Dates: start: 20120206, end: 20120215
  16. ANTIVIRALS FOR SYSTEMIC USE [Concomitant]
     Route: 065
  17. BACTRIM [Concomitant]
     Route: 065
  18. EMEND [Concomitant]
     Route: 065
  19. ISENTRESS [Concomitant]
     Route: 065
  20. NORVIR [Concomitant]
     Route: 065

REACTIONS (3)
  - INTESTINAL OBSTRUCTION [None]
  - ABDOMINAL PAIN [None]
  - CONSTIPATION [None]
